FAERS Safety Report 8194387-4 (Version None)
Quarter: 2012Q1

REPORT INFORMATION
  Report Type: 
  Country: None (occurrence: None)
  Receive Date: 20120308
  Receipt Date: 20120306
  Transmission Date: 20120608
  Serious: No
  Sender: FDA-Public Use
  Company Number: US-PFIZER INC-2012022285

PATIENT
  Sex: Male

DRUGS (3)
  1. CODEINE [Concomitant]
     Dosage: UNK
  2. NAPROXEN [Concomitant]
     Dosage: 375 MG
  3. GABAPENTIN [Suspect]
     Indication: NERVE INJURY
     Dosage: 300 MG, 2X/DAY
     Route: 048

REACTIONS (1)
  - PAIN IN EXTREMITY [None]
